FAERS Safety Report 17766564 (Version 1)
Quarter: 2020Q2

REPORT INFORMATION
  Report Type: Report from Study
  Country: None (occurrence: US)
  Receive Date: 20200511
  Receipt Date: 20200511
  Transmission Date: 20200714
  Serious: Yes (Other)
  Sender: FDA-Public Use
  Company Number: US-BIOVITRUM-2020US0429

PATIENT
  Sex: Female

DRUGS (1)
  1. KINERET [Suspect]
     Active Substance: ANAKINRA
     Indication: RHEUMATOID ARTHRITIS
     Route: 058
     Dates: start: 20190418

REACTIONS (7)
  - Neuropathy peripheral [Unknown]
  - Pain in extremity [Unknown]
  - Breast cancer [Unknown]
  - Aphthous ulcer [Unknown]
  - Drug hypersensitivity [Unknown]
  - Viral infection [Unknown]
  - Anxiety [Unknown]
